FAERS Safety Report 5617400-4 (Version None)
Quarter: 2008Q1

REPORT INFORMATION
  Report Type: 
  Country: None (occurrence: None)
  Receive Date: 20080207
  Receipt Date: 20071029
  Transmission Date: 20080703
  Serious: Yes (Other)
  Sender: FDA-Public Use
  Company Number: A0670637A

PATIENT
  Age: 65 Year
  Sex: Male
  Weight: 93.2 kg

DRUGS (9)
  1. PAROXETINE [Suspect]
     Indication: DRUG USE FOR UNKNOWN INDICATION
     Dosage: 10MG UNKNOWN
     Route: 048
     Dates: start: 20070701, end: 20071001
  2. ALTACE [Concomitant]
     Dosage: 5MG TWICE PER DAY
     Route: 065
  3. ASPIRIN [Concomitant]
     Dosage: 81MG TWICE PER DAY
     Route: 048
  4. SELENIUM [Concomitant]
  5. VITAMIN E [Concomitant]
  6. BETA CAROTENE [Concomitant]
  7. GLUCOSAMINE/CHONDROITIN [Concomitant]
  8. GARLIC [Concomitant]
  9. ASCORBIC ACID [Concomitant]

REACTIONS (9)
  - AGITATION [None]
  - DECREASED APPETITE [None]
  - DECREASED INTEREST [None]
  - DISTURBANCE IN ATTENTION [None]
  - IRRITABILITY [None]
  - MOOD SWINGS [None]
  - SLEEP DISORDER [None]
  - SUICIDAL IDEATION [None]
  - WEIGHT FLUCTUATION [None]
